FAERS Safety Report 20065548 (Version 2)
Quarter: 2022Q2

REPORT INFORMATION
  Report Type: Report from Study
  Country: CO (occurrence: CO)
  Receive Date: 20211113
  Receipt Date: 20220410
  Transmission Date: 20220721
  Serious: Yes (Life-Threatening, Hospitalization)
  Sender: FDA-Public Use
  Company Number: CO-NOVARTISPH-NVSC2021CO184409

PATIENT
  Age: 27 Year
  Sex: Female

DRUGS (1)
  1. ELTROMBOPAG OLAMINE [Suspect]
     Active Substance: ELTROMBOPAG OLAMINE
     Indication: Immune thrombocytopenia
     Dosage: 50 MG, QD
     Route: 048

REACTIONS (3)
  - Platelet count decreased [Unknown]
  - Disease recurrence [Unknown]
  - Delayed delivery [Unknown]

NARRATIVE: CASE EVENT DATE: 20211001
